FAERS Safety Report 9251229 (Version 2)
Quarter: 2013Q2

REPORT INFORMATION
  Report Type: Spontaneous
  Country: ES (occurrence: ES)
  Receive Date: 20130424
  Receipt Date: 20130524
  Transmission Date: 20140414
  Serious: Yes (Hospitalization)
  Sender: FDA-Public Use
  Company Number: ES-PFIZER INC-2013125831

PATIENT
  Age: 89 Year
  Sex: Female

DRUGS (6)
  1. ALDACTONE [Suspect]
     Indication: CARDIAC FAILURE
     Dosage: 25 MG, DAILY
     Route: 048
     Dates: end: 20100527
  2. DIGOXIN [Interacting]
     Indication: ATRIAL FLUTTER
     Dosage: 1.25 MG, WEEKLY
     Route: 048
     Dates: end: 20100527
  3. PRITOR [Interacting]
     Indication: DYSLIPIDAEMIA
     Dosage: 80 MG, DAILY
     Route: 048
     Dates: end: 20100527
  4. SEGURIL [Interacting]
     Indication: CARDIAC FAILURE
     Dosage: 120 MG, DAILY
     Route: 048
     Dates: end: 20100604
  5. METFORMIN [Concomitant]
     Indication: DIABETES MELLITUS
     Dosage: 2.5 G, DAILY
     Route: 048
     Dates: start: 200708, end: 20100527
  6. ALDOCUMAR [Concomitant]
     Indication: ATRIAL FLUTTER
     Dosage: 1 MG, DAILY
     Route: 048
     Dates: start: 201002, end: 20100527

REACTIONS (3)
  - Drug interaction [Recovering/Resolving]
  - Renal failure acute [Recovering/Resolving]
  - Hyperkalaemia [Recovering/Resolving]
